FAERS Safety Report 9249785 (Version 4)
Quarter: 2014Q3

REPORT INFORMATION
  Report Type: Spontaneous
  Country: US (occurrence: US)
  Receive Date: 20130423
  Receipt Date: 20140714
  Transmission Date: 20150326
  Serious: Yes (Hospitalization, Other)
  Sender: FDA-Public Use
  Company Number: US-009507513-1304USA013289

PATIENT
  Sex: Female
  Weight: 104.31 kg

DRUGS (3)
  1. ALBUTEROL. [Concomitant]
     Active Substance: ALBUTEROL
  2. ALEVE [Concomitant]
     Active Substance: NAPROXEN SODIUM
     Indication: MIGRAINE
     Dosage: UNK
     Route: 048
     Dates: start: 200907
  3. NUVARING [Suspect]
     Active Substance: ETHINYL ESTRADIOL\ETONOGESTREL
     Indication: CONTRACEPTION
     Dosage: UNK
     Route: 067
     Dates: start: 20110815, end: 201202

REACTIONS (4)
  - Pulmonary embolism [Unknown]
  - Pharyngitis [Unknown]
  - Anaemia [Unknown]
  - Constipation [Unknown]

NARRATIVE: CASE EVENT DATE: 20120218
